FAERS Safety Report 17882865 (Version 1)
Quarter: 2020Q2

REPORT INFORMATION
  Report Type: Spontaneous
  Country: US (occurrence: US)
  Receive Date: 20200610
  Receipt Date: 20200610
  Transmission Date: 20200714
  Serious: No
  Sender: FDA-Public Use
  Company Number: US-GLENMARK PHARMACEUTICALS-2019GMK043503

PATIENT

DRUGS (4)
  1. LUPRON [Suspect]
     Active Substance: LEUPROLIDE ACETATE
     Dosage: 30 MG (ONE IN 3 MONTH)
     Route: 030
  2. LEUPROLIDE ACETATE. [Suspect]
     Active Substance: LEUPROLIDE ACETATE
     Indication: PRECOCIOUS PUBERTY
     Dosage: 30 MG (ONE IN 3 MONTH)
     Route: 065
     Dates: start: 201810
  3. LUPRON [Suspect]
     Active Substance: LEUPROLIDE ACETATE
     Indication: PRECOCIOUS PUBERTY
     Dosage: 11.25 MG (ONE IN 3 MONTH)
     Route: 030
  4. NORETHINDRONE. [Suspect]
     Active Substance: NORETHINDRONE
     Indication: PRECOCIOUS PUBERTY
     Dosage: 30 MG (ONE IN 3 MONTH)
     Route: 065

REACTIONS (4)
  - Musculoskeletal disorder [Recovered/Resolved]
  - Injection site pain [Recovered/Resolved]
  - Drug ineffective [Unknown]
  - Musculoskeletal stiffness [Recovered/Resolved]

NARRATIVE: CASE EVENT DATE: 201810
